FAERS Safety Report 18791828 (Version 1)
Quarter: 2021Q1

REPORT INFORMATION
  Report Type: Other
  Country: US (occurrence: US)
  Receive Date: 20210127
  Receipt Date: 20210127
  Transmission Date: 20210419
  Serious: Yes (Hospitalization)
  Sender: FDA-Public Use
  Company Number: US-AJANTA PHARMA USA INC.-2105866

PATIENT
  Age: 65 Year
  Sex: Female

DRUGS (3)
  1. CHLORTHALIDONE (ANDA 214129) [Suspect]
     Active Substance: CHLORTHALIDONE
     Indication: HYPERTENSION
  2. ATENOLOL. [Concomitant]
     Active Substance: ATENOLOL
  3. LISINOPRIL. [Concomitant]
     Active Substance: LISINOPRIL

REACTIONS (2)
  - Angle closure glaucoma [Recovered/Resolved]
  - Hyponatraemia [Recovered/Resolved]
